FAERS Safety Report 6626547-5 (Version None)
Quarter: 2010Q1

REPORT INFORMATION
  Report Type: 
  Country: None (occurrence: None)
  Receive Date: 20100310
  Receipt Date: 20100302
  Transmission Date: 20100710
  Serious: Yes (Hospitalization)
  Sender: FDA-Public Use
  Company Number: FR-ABBOTT-09P-056-0611526-00

PATIENT
  Sex: Male
  Weight: 75 kg

DRUGS (1)
  1. LIPANTHYL [Suspect]
     Indication: HYPERCHOLESTEROLAEMIA
     Route: 048
     Dates: start: 20090801, end: 20091001

REACTIONS (2)
  - HYPERHOMOCYSTEINAEMIA [None]
  - PULMONARY EMBOLISM [None]
